FAERS Safety Report 8691820 (Version 2)
Quarter: 2013Q1

REPORT INFORMATION
  Report Type: Spontaneous
  Country: FR (occurrence: FR)
  Receive Date: 20120730
  Receipt Date: 20130327
  Transmission Date: 20140127
  Serious: Yes (Hospitalization)
  Sender: FDA-Public Use
  Company Number: FR-PFIZER INC-2012179485

PATIENT
  Age: 46 Year
  Sex: Male

DRUGS (8)
  1. ALDACTONE [Suspect]
     Dosage: 50 MG, DAILY
     Route: 048
     Dates: end: 20120701
  2. DOBUTAMINE [Suspect]
     Indication: EJECTION FRACTION DECREASED
     Dosage: UNK
     Route: 042
     Dates: start: 20120606
  3. COROTROPE [Suspect]
     Indication: EJECTION FRACTION DECREASED
     Dosage: UNK
     Route: 042
     Dates: start: 20120606, end: 20120701
  4. IXPRIM [Suspect]
     Indication: PAIN
     Dosage: UNK
     Route: 048
     Dates: end: 20120701
  5. IMOVANE [Suspect]
     Dosage: UNK
     Route: 048
     Dates: end: 20120701
  6. LASILIX [Suspect]
     Dosage: 40 MG, DAILY
     Route: 048
     Dates: end: 20120701
  7. PROCORALAN [Suspect]
     Dosage: 7.5 MG, 2X/DAY
     Route: 048
     Dates: end: 20120701
  8. CARDENSIEL [Suspect]
     Dosage: 2.5 MG, DAILY
     Route: 048
     Dates: end: 20120701

REACTIONS (2)
  - Eosinophilic myocarditis [Not Recovered/Not Resolved]
  - Cardiogenic shock [Unknown]
